FAERS Safety Report 4803062-2 (Version None)
Quarter: 2005Q4

REPORT INFORMATION
  Report Type: 
  Country: None (occurrence: None)
  Receive Date: 20051019
  Receipt Date: 20051017
  Transmission Date: 20060501
  Serious: Yes (Hospitalization)
  Sender: FDA-Public Use
  Company Number: FR-GLAXOSMITHKLINE-B0397564A

PATIENT
  Age: 38 Year
  Sex: Male

DRUGS (1)
  1. IMIJECT [Suspect]
     Indication: FACIAL PAIN
     Route: 058

REACTIONS (2)
  - EOSINOPHILIA [None]
  - OVERDOSE [None]
